FAERS Safety Report 10068414 (Version 2)
Quarter: 2014Q2

REPORT INFORMATION
  Report Type: Spontaneous
  Country: US (occurrence: US)
  Receive Date: 20140409
  Receipt Date: 20140515
  Transmission Date: 20141212
  Serious: No
  Sender: FDA-Public Use
  Company Number: US-FRI-1000066031

PATIENT
  Sex: Male
  Weight: 112.94 kg

DRUGS (3)
  1. ARMOUR THYROID [Suspect]
     Indication: HYPOTHYROIDISM
     Dosage: 30 MG
     Route: 048
     Dates: start: 201403, end: 201404
  2. ADRENAL STRESS END [Concomitant]
     Dates: start: 20140206
  3. ENERGY REVITALIZATION SYSTEM [Concomitant]

REACTIONS (1)
  - Heart rate increased [Recovered/Resolved]
